FAERS Safety Report 25377074 (Version 2)
Quarter: 2025Q2

REPORT INFORMATION
  Report Type: Spontaneous
  Country: CN (occurrence: CN)
  Receive Date: 20250530
  Receipt Date: 20250630
  Transmission Date: 20250717
  Serious: Yes (Hospitalization, Other)
  Sender: RANBAXY
  Company Number: CN-SUN PHARMACEUTICAL INDUSTRIES LTD-2025R1-509910

PATIENT
  Age: 71 Year
  Sex: Male

DRUGS (1)
  1. SONIDEGIB [Suspect]
     Active Substance: SONIDEGIB
     Indication: Basal cell carcinoma
     Dosage: 1 CAPSULE, QD
     Route: 048
     Dates: start: 202409, end: 202503

REACTIONS (9)
  - Hepatic function abnormal [Unknown]
  - Blood creatine phosphokinase increased [Recovering/Resolving]
  - Autoimmune enteropathy [Recovering/Resolving]
  - Colitis ulcerative [Recovering/Resolving]
  - Joint swelling [Unknown]
  - Arthropathy [Unknown]
  - Erythema [Recovered/Resolved]
  - Drug ineffective [Unknown]
  - Decreased appetite [Unknown]
